FAERS Safety Report 8205346-7 (Version None)
Quarter: 2012Q1

REPORT INFORMATION
  Report Type: 
  Country: None (occurrence: None)
  Receive Date: 20120313
  Receipt Date: 20120305
  Transmission Date: 20120608
  Serious: Yes (Other)
  Sender: FDA-Public Use
  Company Number: US-ASTRAZENECA-2012SE15215

PATIENT
  Sex: Female

DRUGS (1)
  1. SEROQUEL [Suspect]
     Indication: BIPOLAR DISORDER
     Route: 048

REACTIONS (6)
  - MOOD SWINGS [None]
  - SLEEP DISORDER [None]
  - SUICIDAL IDEATION [None]
  - DRUG DOSE OMISSION [None]
  - SOCIAL AVOIDANT BEHAVIOUR [None]
  - AFFECT LABILITY [None]
